FAERS Safety Report 8541806-7 (Version None)
Quarter: 2012Q3

REPORT INFORMATION
  Report Type: 
  Country: None (occurrence: None)
  Receive Date: 20120726
  Receipt Date: 20110907
  Transmission Date: 20120928
  Serious: No
  Sender: FDA-Public Use
  Company Number: US-ASTRAZENECA-2011SE53700

PATIENT
  Age: 33 Year
  Sex: Female

DRUGS (1)
  1. SEROQUEL XR [Suspect]
     Indication: POSTPARTUM NEUROSIS
     Route: 048

REACTIONS (3)
  - MATERNAL EXPOSURE DURING PREGNANCY [None]
  - OFF LABEL USE [None]
  - NIGHT SWEATS [None]
